FAERS Safety Report 9689227 (Version 1)
Quarter: 2013Q4

REPORT INFORMATION
  Report Type: Spontaneous
  Country: US (occurrence: US)
  Receive Date: 20131114
  Receipt Date: 20131114
  Transmission Date: 20140711
  Serious: Yes (Other)
  Sender: FDA-Public Use
  Company Number: US-009507513-1311USA005518

PATIENT
  Age: 45 Year
  Sex: Female

DRUGS (1)
  1. SINGULAIR [Suspect]
     Indication: ASTHMA
     Route: 048

REACTIONS (5)
  - Asthma [Unknown]
  - Nasal congestion [Unknown]
  - Product quality issue [Unknown]
  - Product substitution issue [Unknown]
  - Rhinorrhoea [Unknown]
